FAERS Safety Report 15597601 (Version 2)
Quarter: 2018Q4

REPORT INFORMATION
  Report Type: Spontaneous
  Country: US (occurrence: US)
  Receive Date: 20181108
  Receipt Date: 20181113
  Transmission Date: 20190205
  Serious: Yes (Other)
  Sender: FDA-Public Use
  Company Number: US-TEVA-2018-US-971534

PATIENT
  Sex: Male

DRUGS (1)
  1. NICOTGUM-A [Suspect]
     Active Substance: NICOTINE
     Route: 065
     Dates: start: 20181029

REACTIONS (2)
  - Dyspnoea [Unknown]
  - Chest discomfort [Unknown]

NARRATIVE: CASE EVENT DATE: 20181030
